FAERS Safety Report 8951684 (Version 1)
Quarter: 2012Q4

REPORT INFORMATION
  Report Type: 
  Country: US (occurrence: US)
  Receive Date: 20121204
  Receipt Date: 20121204
  Transmission Date: 20130627
  Serious: Yes (Hospitalization, Congenital Anomaly, Other)
  Sender: FDA-Public Use
  Company Number: US-PFIZER INC-2012300617

PATIENT
  Age: 11 Month
  Sex: Female
  Weight: 3.4 kg

DRUGS (3)
  1. ZOLOFT [Suspect]
     Indication: DEPRESSION
     Dosage: 50 mg, 1xday
     Route: 064
     Dates: start: 20070102
  2. ZOLOFT [Suspect]
     Dosage: 100 mg
     Route: 064
     Dates: start: 20070411
  3. PRENATAL VITAMINS [Concomitant]
     Dosage: UNK
     Route: 064

REACTIONS (6)
  - Maternal exposure during pregnancy [Unknown]
  - Atrial septal defect [Unknown]
  - Right atrial dilatation [Unknown]
  - Right ventricular failure [Unknown]
  - Congenital pulmonary artery anomaly [Unknown]
  - Dilatation ventricular [Unknown]
